FAERS Safety Report 5356387-9 (Version None)
Quarter: 2007Q2

REPORT INFORMATION
  Report Type: 
  Country: None (occurrence: None)
  Receive Date: 20070530
  Receipt Date: 20061214
  Transmission Date: 20071010
  Serious: Yes (Hospitalization)
  Sender: FDA-Public Use
  Company Number: US200609006139

PATIENT
  Age: 52 Year
  Sex: Male
  Weight: 121.5 kg

DRUGS (14)
  1. ZYPREXA [Suspect]
     Indication: DEMENTIA
     Dates: start: 19970101
  2. QUETIAPINE FUMARATE [Concomitant]
  3. ZIPRASIDONE HCL [Concomitant]
  4. THORAZINE [Concomitant]
  5. HALOPERIDOL [Concomitant]
  6. CARBAMAZEPINE [Concomitant]
  7. DEPAKOTE [Concomitant]
  8. LITHIUM CARBONATE [Concomitant]
  9. BUPROPION HCL [Concomitant]
  10. CITALOPRAM HYDROBROMIDE [Concomitant]
  11. FLUOXETINE [Concomitant]
  12. VENLAFAXINE HCL [Concomitant]
  13. PREDNISONE TAB [Concomitant]
  14. GLIPIZIDE [Concomitant]

REACTIONS (4)
  - BLOOD TRIGLYCERIDES INCREASED [None]
  - DIABETES MELLITUS [None]
  - DIABETIC COMA [None]
  - METABOLIC DISORDER [None]
